FAERS Safety Report 14844096 (Version 3)
Quarter: 2018Q4

REPORT INFORMATION
  Report Type: Report from Study
  Country: GB (occurrence: GB)
  Receive Date: 20180503
  Receipt Date: 20181130
  Transmission Date: 20190204
  Serious: Yes (Other)
  Sender: FDA-Public Use
  Company Number: GB-BRISTOL-MYERS SQUIBB COMPANY-BMS-2018-004607

PATIENT
  Sex: Female

DRUGS (8)
  1. METHOTREXATE. [Concomitant]
     Active Substance: METHOTREXATE
     Indication: RHEUMATOID ARTHRITIS
     Dosage: 15 MG, QWK
     Route: 065
  2. BETMIGA [Concomitant]
     Active Substance: MIRABEGRON
     Indication: PRODUCT USED FOR UNKNOWN INDICATION
     Route: 065
  3. PARACETAMOL [Concomitant]
     Active Substance: ACETAMINOPHEN
     Indication: RHEUMATOID ARTHRITIS
     Dosage: 1000 MG, QD
     Route: 065
  4. OMEPRAZOLE. [Concomitant]
     Active Substance: OMEPRAZOLE
     Indication: ABDOMINAL PAIN
     Dosage: 10 MG, QD
     Route: 065
  5. METFORMIN [Concomitant]
     Active Substance: METFORMIN HYDROCHLORIDE
     Indication: TYPE 2 DIABETES MELLITUS
     Dosage: 500 MG, TID
     Route: 065
  6. NITROFURANTOIN. [Concomitant]
     Active Substance: NITROFURANTOIN
     Indication: BLADDER DISORDER
     Route: 065
  7. LISINOPRIL. [Concomitant]
     Active Substance: LISINOPRIL
     Indication: BLOOD PRESSURE MEASUREMENT
     Dosage: 5 MG, QD
     Route: 065
  8. ABATACEPT [Suspect]
     Active Substance: ABATACEPT
     Indication: RHEUMATOID ARTHRITIS
     Dosage: 125 MG, QWK
     Route: 058
     Dates: start: 20170907

REACTIONS (3)
  - Cough [Unknown]
  - Pyrexia [Unknown]
  - Osteoarthritis [Not Recovered/Not Resolved]
